FAERS Safety Report 9678782 (Version 1)
Quarter: 2013Q4

REPORT INFORMATION
  Report Type: Spontaneous
  Country: HU (occurrence: None)
  Receive Date: 20131107
  Receipt Date: 20131107
  Transmission Date: 20140711
  Serious: Yes (Death, Hospitalization)
  Sender: FDA-Public Use
  Company Number: VAL_02794_2013

PATIENT
  Age: 62 Year
  Sex: Female

DRUGS (2)
  1. METOPROLOL (METOPROLOL - METOPROLOL TARTRATE) [Suspect]
     Indication: ARRHYTHMIA
  2. AMIODARONE (AMIODARONE) [Suspect]
     Indication: ARRHYTHMIA

REACTIONS (4)
  - Sepsis [None]
  - Tachycardia [None]
  - Electrocardiogram QT prolonged [None]
  - Ventricular extrasystoles [None]
